FAERS Safety Report 17245787 (Version 1)
Quarter: 2019Q4

REPORT INFORMATION
  Report Type: Spontaneous
  Country: US (occurrence: US)
  Receive Date: 20191213
  Receipt Date: 20191213
  Transmission Date: 20200122
  Serious: Yes (Hospitalization)
  Sender: FDA-Public Use
  Company Number: None

PATIENT
  Age: 87 Year
  Sex: Male
  Weight: 51 kg

DRUGS (2)
  1. IBUPROFEN (IBUPROFEN 600MG TAB) [Suspect]
     Active Substance: IBUPROFEN
  2. ASPIRIN/CITRIC ACID/SODIUM BICARBONATE (ASPIRIN 325MG/ CITRIC ACID/SOD [Suspect]
     Active Substance: ANHYDROUS CITRIC ACID\ASPIRIN\SODIUM BICARBONATE

REACTIONS (5)
  - Chest pain [None]
  - Dyspnoea [None]
  - Duodenal ulcer [None]
  - Gastritis [None]
  - Oesophagitis [None]

NARRATIVE: CASE EVENT DATE: 20191017
